FAERS Safety Report 10674788 (Version 1)
Quarter: 2014Q4

REPORT INFORMATION
  Report Type: Spontaneous
  Country: US (occurrence: None)
  Receive Date: 20141223
  Receipt Date: 20141223
  Transmission Date: 20150529
  Serious: Yes (Other)
  Sender: FDA-Public Use
  Company Number: None

PATIENT
  Age: 65 Year
  Sex: Female

DRUGS (22)
  1. TRILEPTAL [Concomitant]
     Active Substance: OXCARBAZEPINE
  2. AMITIZA [Concomitant]
     Active Substance: LUBIPROSTONE
  3. MIRALAX [Concomitant]
     Active Substance: POLYETHYLENE GLYCOL 3350
  4. BENADRYL [Concomitant]
     Active Substance: DIPHENHYDRAMINE HYDROCHLORIDE
  5. MG OXIDE [Concomitant]
  6. PROTONIX INJ [Concomitant]
  7. PRAVACHOL [Concomitant]
     Active Substance: PRAVASTATIN SODIUM
  8. LASIX [Concomitant]
     Active Substance: FUROSEMIDE
  9. LYRICA [Concomitant]
     Active Substance: PREGABALIN
  10. COLACE [Concomitant]
     Active Substance: DOCUSATE SODIUM
  11. BACLOFEN. [Concomitant]
     Active Substance: BACLOFEN
  12. EXEMASTANE [Concomitant]
     Active Substance: EXEMESTANE
  13. XGEVA [Concomitant]
     Active Substance: DENOSUMAB
  14. AGGRENOX [Concomitant]
     Active Substance: ASPIRIN\DIPYRIDAMOLE
  15. AFINITOR [Suspect]
     Active Substance: EVEROLIMUS
     Indication: BREAST CANCER
     Route: 048
     Dates: start: 20141201
  16. ZANAFLEX [Concomitant]
     Active Substance: TIZANIDINE HYDROCHLORIDE
  17. RESTASIS EMU [Concomitant]
  18. KCL [Concomitant]
     Active Substance: POTASSIUM CHLORIDE
  19. KEPPRA [Concomitant]
     Active Substance: LEVETIRACETAM
  20. EVOXAC [Concomitant]
     Active Substance: CEVIMELINE HYDROCHLORIDE
  21. PLAQUENIL [Concomitant]
     Active Substance: HYDROXYCHLOROQUINE SULFATE
  22. ZOFRAN [Concomitant]
     Active Substance: ONDANSETRON HYDROCHLORIDE

REACTIONS (2)
  - Stomatitis [None]
  - Fatigue [None]

NARRATIVE: CASE EVENT DATE: 20141201
